FAERS Safety Report 20462208 (Version 1)
Quarter: 2022Q1

REPORT INFORMATION
  Report Type: Spontaneous
  Country: US (occurrence: US)
  Receive Date: 20220211
  Receipt Date: 20220211
  Transmission Date: 20220423
  Serious: No
  Sender: FDA-Public Use
  Company Number: US-EPIHEALTH-2022-US-001038

PATIENT
  Age: 61 Year
  Sex: Female
  Weight: 54.43 kg

DRUGS (1)
  1. RHOFADE [Suspect]
     Active Substance: OXYMETAZOLINE HYDROCHLORIDE
     Indication: Rosacea
     Dosage: APPLIED ALL OVER FACE INCLUDING EYELIDS
     Route: 061
     Dates: start: 20210928, end: 20210930

REACTIONS (2)
  - Rosacea [Not Recovered/Not Resolved]
  - Product use in unapproved indication [Recovered/Resolved]

NARRATIVE: CASE EVENT DATE: 20210929
